FAERS Safety Report 7524854-5 (Version None)
Quarter: 2011Q2

REPORT INFORMATION
  Report Type: 
  Country: None (occurrence: None)
  Receive Date: 20110606
  Receipt Date: 20110531
  Transmission Date: 20111010
  Serious: Yes (Other)
  Sender: FDA-Public Use
  Company Number: US-PFIZER INC-2011118829

PATIENT
  Sex: Female

DRUGS (1)
  1. CHANTIX [Suspect]
     Dosage: UNK
     Dates: start: 20080701

REACTIONS (4)
  - AGGRESSION [None]
  - ANGER [None]
  - ANXIETY [None]
  - DEPRESSION [None]
